FAERS Safety Report 9922969 (Version 2)
Quarter: 2014Q1

REPORT INFORMATION
  Report Type: Spontaneous
  Country: AU (occurrence: AU)
  Receive Date: 20140225
  Receipt Date: 20140303
  Transmission Date: 20141002
  Serious: Yes (Life-Threatening, Other)
  Sender: FDA-Public Use
  Company Number: US-ASTRAZENECA-2014SE12207

PATIENT
  Sex: Male

DRUGS (2)
  1. SYNAGIS [Suspect]
     Indication: PRODUCT USED FOR UNKNOWN INDICATION
     Dosage: ONE DOSE ONE TIME
     Route: 030
     Dates: start: 20110608, end: 20110608
  2. IMMUNOGLOBULIN [Concomitant]
     Indication: RESPIRATORY SYNCYTIAL VIRUS INFECTION

REACTIONS (3)
  - Oxygen saturation decreased [Unknown]
  - Tachycardia [Unknown]
  - Respiratory syncytial virus infection [Unknown]
